FAERS Safety Report 11333252 (Version 1)
Quarter: 2015Q3

REPORT INFORMATION
  Report Type: Spontaneous
  Country: US (occurrence: US)
  Receive Date: 20150803
  Receipt Date: 20150803
  Transmission Date: 20151125
  Serious: Yes (Other)
  Sender: FDA-Public Use
  Company Number: US-GLAXOSMITHKLINE-US2015110259

PATIENT
  Age: 65 Year
  Sex: Male

DRUGS (5)
  1. OMEPRAZOLE. [Concomitant]
     Active Substance: OMEPRAZOLE
  2. ATENOLOL. [Concomitant]
     Active Substance: ATENOLOL
  3. FLONASE [Suspect]
     Active Substance: FLUTICASONE PROPIONATE
     Indication: SINUS DISORDER
     Dosage: 1 PUFF(S), 1D
     Route: 045
     Dates: start: 201406, end: 201407
  4. LORATADINE. [Concomitant]
     Active Substance: LORATADINE
  5. FLONASE [Suspect]
     Active Substance: FLUTICASONE PROPIONATE
     Dosage: 1 PUFF(S), 1D
     Route: 045
     Dates: start: 201408, end: 20150101

REACTIONS (10)
  - Discomfort [Recovered/Resolved]
  - Headache [Recovered/Resolved]
  - Impaired healing [Recovered/Resolved]
  - Toothache [Recovered/Resolved]
  - Lymph node pain [Recovered/Resolved]
  - Neck pain [Recovered/Resolved]
  - Tooth abscess [Recovered/Resolved]
  - Adverse drug reaction [Recovered/Resolved]
  - Facial pain [Recovered/Resolved]
  - Wheezing [Recovered/Resolved]

NARRATIVE: CASE EVENT DATE: 20140701
